FAERS Safety Report 22143076 (Version 3)
Quarter: 2023Q2

REPORT INFORMATION
  Report Type: Report from Study
  Country: BE (occurrence: BE)
  Receive Date: 20230327
  Receipt Date: 20230407
  Transmission Date: 20230721
  Serious: Yes (Hospitalization, Other)
  Sender: FDA-Public Use
  Company Number: BE-CELLTRION HEALTHCARE HUNGARY KFT-2023BE005189

PATIENT
  Age: 73 Year
  Sex: Male
  Weight: 73 kg

DRUGS (13)
  1. LENALIDOMIDE [Suspect]
     Active Substance: LENALIDOMIDE
     Indication: Marginal zone lymphoma
     Dosage: 20 MILLIGRAM, QD  (20 MG, QD)
     Route: 048
     Dates: start: 20220428, end: 20221218
  2. LENALIDOMIDE [Suspect]
     Active Substance: LENALIDOMIDE
     Dosage: 20 MILLIGRAM
     Route: 048
     Dates: start: 20221218, end: 20221220
  3. LENALIDOMIDE [Suspect]
     Active Substance: LENALIDOMIDE
     Dosage: 15 MILLIGRAM, QD (15 MG, QD)
     Route: 048
     Dates: end: 20221220
  4. LENALIDOMIDE [Suspect]
     Active Substance: LENALIDOMIDE
     Dosage: 20 MILLIGRAM
     Route: 048
     Dates: start: 20230104
  5. LENALIDOMIDE [Suspect]
     Active Substance: LENALIDOMIDE
     Dosage: 15 MILLIGRAM, QD  (15 MG, QD)
     Route: 048
  6. RITUXIMAB [Suspect]
     Active Substance: RITUXIMAB
     Indication: Marginal zone lymphoma
     Dosage: UNK (UNK)
     Route: 042
     Dates: start: 20220817
  7. RITUXIMAB [Suspect]
     Active Substance: RITUXIMAB
     Dosage: 907.5 MILLIGRAM (907.5 MILLIGRAM)
     Route: 042
     Dates: start: 20220428, end: 20220817
  8. RITUXIMAB [Suspect]
     Active Substance: RITUXIMAB
     Dosage: 911.25 MILLIGRAM (911.25 MG)
     Route: 042
  9. TAFASITAMAB [Suspect]
     Active Substance: TAFASITAMAB
     Indication: Marginal zone lymphoma
     Dosage: 1416 MILLIGRAM (1416 MG)
     Route: 042
     Dates: start: 20220428
  10. TAFASITAMAB [Suspect]
     Active Substance: TAFASITAMAB
     Dosage: UNK, (UNK)
     Route: 042
     Dates: start: 20221209
  11. TAFASITAMAB [Suspect]
     Active Substance: TAFASITAMAB
     Dosage: UNK (UNK)
     Route: 042
     Dates: end: 20221221
  12. TAFASITAMAB [Suspect]
     Active Substance: TAFASITAMAB
     Dosage: 1356 MILLIGRAM (1356 MG)
     Route: 042
     Dates: start: 20230104
  13. TAFASITAMAB [Suspect]
     Active Substance: TAFASITAMAB
     Dosage: 1404 MILLIGRAM (1404 MILLIGRAM)
     Route: 042

REACTIONS (2)
  - Pneumonia [Recovered/Resolved]
  - Off label use [Unknown]

NARRATIVE: CASE EVENT DATE: 20221218
